FAERS Safety Report 17053027 (Version 1)
Quarter: 2019Q4

REPORT INFORMATION
  Report Type: Spontaneous
  Country: US (occurrence: US)
  Receive Date: 20191120
  Receipt Date: 20191120
  Transmission Date: 20200122
  Serious: Yes (Hospitalization)
  Sender: FDA-Public Use
  Company Number: US-JNJFOC-20191115170

PATIENT
  Age: 47 Year
  Sex: Female

DRUGS (1)
  1. INVOKANA [Suspect]
     Active Substance: CANAGLIFLOZIN
     Indication: PRODUCT USED FOR UNKNOWN INDICATION
     Route: 065

REACTIONS (5)
  - Osteomyelitis [Unknown]
  - Foot amputation [Unknown]
  - Diabetic neuropathic ulcer [Unknown]
  - Diabetic foot infection [Unknown]
  - Gangrene [Unknown]

NARRATIVE: CASE EVENT DATE: 201402
